FAERS Safety Report 14016426 (Version 1)
Quarter: 2017Q3

REPORT INFORMATION
  Report Type: Spontaneous
  Country: US (occurrence: None)
  Receive Date: 20170927
  Receipt Date: 20170927
  Transmission Date: 20171128
  Serious: No
  Sender: FDA-Public Use
  Company Number: None

PATIENT
  Age: 74 Year
  Sex: Male
  Weight: 102.06 kg

DRUGS (13)
  1. COREG CR [Concomitant]
     Active Substance: CARVEDILOL PHOSPHATE
  2. MILK THISTLE [Concomitant]
     Active Substance: MILK THISTLE
  3. VITAMIN B12 [Concomitant]
     Active Substance: CYANOCOBALAMIN
  4. LASIX [Concomitant]
     Active Substance: FUROSEMIDE
  5. AMLODIPINE [Concomitant]
     Active Substance: AMLODIPINE BESYLATE
  6. XIIDRA [Suspect]
     Active Substance: LIFITEGRAST
     Indication: DRY EYE
     Dosage: DOSE - 1 VIAL - SINGLE USE
     Route: 047
  7. GLUCOPHAGE/METFORMIN [Concomitant]
  8. VITAMIN D3 [Concomitant]
     Active Substance: CHOLECALCIFEROL
  9. BENICAR [Concomitant]
     Active Substance: OLMESARTAN MEDOXOMIL
  10. LIVALO [Concomitant]
     Active Substance: PITAVASTATIN CALCIUM
  11. FISH OIL [Concomitant]
     Active Substance: FISH OIL
  12. PRADAXA [Concomitant]
     Active Substance: DABIGATRAN ETEXILATE MESYLATE
  13. DOXAZOSIN [Concomitant]
     Active Substance: DOXAZOSIN\DOXAZOSIN MESYLATE

REACTIONS (2)
  - Eye pain [None]
  - Ocular hyperaemia [None]

NARRATIVE: CASE EVENT DATE: 20170620
